FAERS Safety Report 6115677-2 (Version None)
Quarter: 2009Q1

REPORT INFORMATION
  Report Type: 
  Country: None (occurrence: None)
  Receive Date: 20090313
  Receipt Date: 20090310
  Transmission Date: 20090719
  Serious: Yes (Death, Hospitalization)
  Sender: FDA-Public Use
  Company Number: FR-B.I. PHARMACEUTICALS,INC./RIDGEFIELD-2009-FF-00185FF

PATIENT
  Age: 83 Year
  Sex: Male

DRUGS (5)
  1. SPIRIVA [Suspect]
     Dosage: 18MCG
     Route: 055
     Dates: start: 20080101
  2. TAMSULOSINE [Concomitant]
     Indication: DYSURIA
  3. SOTALEX [Concomitant]
  4. COTRIATEC [Concomitant]
  5. VITABACT [Concomitant]

REACTIONS (3)
  - DYSURIA [None]
  - LUNG DISORDER [None]
  - URINARY RETENTION [None]
